FAERS Safety Report 14425680 (Version 2)
Quarter: 2018Q1

REPORT INFORMATION
  Report Type: Spontaneous
  Country: JP (occurrence: JP)
  Receive Date: 20180123
  Receipt Date: 20180216
  Transmission Date: 20180509
  Serious: Yes (Hospitalization, Other)
  Sender: FDA-Public Use
  Company Number: JP-ROCHE-2060116

PATIENT
  Age: 59 Year
  Sex: Female
  Weight: 42 kg

DRUGS (16)
  1. GLAKAY [Concomitant]
     Active Substance: MENATETRENONE
     Dosage: DOSAGE IS UNCERTAIN.
     Route: 048
  2. ARTIST [Concomitant]
     Active Substance: CARVEDILOL
     Dosage: DOSAGE IS UNCERTAIN.
     Route: 048
  3. SELBEX [Concomitant]
     Active Substance: TEPRENONE
     Dosage: DOSAGE IS UNCERTAIN.
     Route: 048
  4. PRECIPITATED CALCIUM CARBONATE [Concomitant]
     Active Substance: CALCIUM CARBONATE
     Dosage: DOSAGE IS UNCERTAIN.
     Route: 048
  5. L CARTIN FF [Concomitant]
     Active Substance: LEVOCARNITINE
     Dosage: DOSAGE IS UNCERTAIN.
     Route: 048
  6. FESIN (JAPAN) [Concomitant]
     Active Substance: IRON SUCROSE
     Dosage: DOSAGE IS UNCERTAIN.
     Route: 065
  7. LAC-B [Concomitant]
     Active Substance: BIFIDOBACTERIUM SPP.
     Dosage: DOSAGE IS UNCERTAIN.
     Route: 048
  8. RECALBON (JAPAN) [Suspect]
     Active Substance: MINODRONIC ACID
     Indication: PRODUCT USED FOR UNKNOWN INDICATION
     Dosage: DATE OF LAST DOSE ON 01/DEC/2015
     Route: 048
     Dates: start: 201301
  9. VASOLAN [Concomitant]
     Active Substance: VERAPAMIL HYDROCHLORIDE
     Dosage: DOSAGE IS UNCERTAIN.
     Route: 048
  10. MIRCERA [Concomitant]
     Active Substance: METHOXY POLYETHYLENE GLYCOL-EPOETIN BETA
     Dosage: DOSAGE IS UNCERTAIN.
     Route: 065
  11. CLARITHROMYCIN. [Concomitant]
     Active Substance: CLARITHROMYCIN
     Route: 048
  12. BONVIVA [Suspect]
     Active Substance: IBANDRONATE SODIUM
     Indication: OSTEOPOROSIS
     Dosage: DATE OF LAST DOSE ON APR/2017
     Route: 042
     Dates: start: 20151211, end: 20170529
  13. BAYASPIRIN [Concomitant]
     Active Substance: ASPIRIN
     Dosage: DOSAGE IS UNCERTAIN.
     Route: 065
  14. FRANDOL [Concomitant]
     Active Substance: ISOSORBIDE DINITRATE
     Dosage: DOSAGE IS UNCERTAIN.
     Route: 062
  15. HERBESSER [Concomitant]
     Active Substance: DILTIAZEM HYDROCHLORIDE
     Dosage: DOSAGE IS UNCERTAIN.
     Route: 048
  16. ANPLAG [Concomitant]
     Active Substance: SARPOGRELATE
     Dosage: DOSAGE IS UNCERTAIN.
     Route: 048

REACTIONS (2)
  - Infected fistula [Unknown]
  - Osteonecrosis of jaw [Not Recovered/Not Resolved]

NARRATIVE: CASE EVENT DATE: 20170523
